FAERS Safety Report 11513209 (Version 1)
Quarter: 2015Q3

REPORT INFORMATION
  Report Type: Spontaneous
  Country: US (occurrence: US)
  Receive Date: 20150916
  Receipt Date: 20150916
  Transmission Date: 20151125
  Serious: No
  Sender: FDA-Public Use
  Company Number: US-PERRIGO-15US005349

PATIENT
  Age: 53 Year
  Sex: Female
  Weight: 54.42 kg

DRUGS (2)
  1. IMIQUIMOD 5% 2H1 [Suspect]
     Active Substance: IMIQUIMOD
     Indication: ANOGENITAL WARTS
     Dosage: ONE APPLICATION, QD FOR 3 DAYS ON AND 2 DAYS OFF
     Route: 061
     Dates: start: 201503, end: 20150415
  2. IMIQUIMOD 5% 2H1 [Suspect]
     Active Substance: IMIQUIMOD
     Dosage: ONE APPLICATION, QD FOR 3 DAYS ON AND 2 DAYS OFF
     Route: 061
     Dates: start: 20150429

REACTIONS (1)
  - Condition aggravated [Unknown]

NARRATIVE: CASE EVENT DATE: 20150421
